FAERS Safety Report 4360165-7 (Version None)
Quarter: 2004Q2

REPORT INFORMATION
  Report Type: 
  Country: None (occurrence: None)
  Receive Date: 20040513
  Receipt Date: 20040507
  Transmission Date: 20050107
  Serious: Yes (Hospitalization)
  Sender: FDA-Public Use
  Company Number: CIP04000973

PATIENT
  Age: 88 Year
  Sex: Male

DRUGS (1)
  1. ASACOL [Suspect]
     Dosage: ORAL
     Route: 048

REACTIONS (4)
  - GASTRIC ULCER [None]
  - GASTROINTESTINAL HAEMORRHAGE [None]
  - LUNG ABSCESS [None]
  - PEPTIC ULCER [None]
